FAERS Safety Report 17753257 (Version 1)
Quarter: 2020Q2

REPORT INFORMATION
  Report Type: Spontaneous
  Country: IT (occurrence: IT)
  Receive Date: 20200506
  Receipt Date: 20200506
  Transmission Date: 20200714
  Serious: Yes (Other)
  Sender: FDA-Public Use
  Company Number: NVSC2020IT121244

PATIENT
  Age: 43 Year
  Sex: Female

DRUGS (2)
  1. PARACETAMOL [Suspect]
     Active Substance: ACETAMINOPHEN
     Indication: ANTIINFLAMMATORY THERAPY
     Dosage: 1 DF
     Route: 048
     Dates: start: 20200205, end: 20200205
  2. OKI [Suspect]
     Active Substance: KETOPROFEN LYSINE
     Indication: ANTIINFLAMMATORY THERAPY
     Dosage: 1 DF
     Route: 048
     Dates: start: 20200205, end: 20200205

REACTIONS (4)
  - Hypersensitivity [Recovering/Resolving]
  - Musculoskeletal discomfort [Recovering/Resolving]
  - Face oedema [Recovering/Resolving]
  - Dyspnoea [Recovering/Resolving]

NARRATIVE: CASE EVENT DATE: 20200205
